FAERS Safety Report 15160870 (Version 2)
Quarter: 2018Q3

REPORT INFORMATION
  Report Type: Spontaneous
  Country: GB (occurrence: GB)
  Receive Date: 20180718
  Receipt Date: 20180803
  Transmission Date: 20181010
  Serious: Yes (Other)
  Sender: FDA-Public Use
  Company Number: GB-ALLERGAN-1835511US

PATIENT
  Age: 45 Year
  Sex: Female

DRUGS (1)
  1. BOTOX [Suspect]
     Active Substance: ONABOTULINUMTOXINA
     Indication: SKIN WRINKLING
     Dosage: UNK UNK, SINGLE
     Route: 030
     Dates: start: 2005, end: 2005

REACTIONS (22)
  - Toxicity to various agents [Unknown]
  - Tremor [Not Recovered/Not Resolved]
  - Influenza like illness [Recovering/Resolving]
  - Suicidal ideation [Unknown]
  - Livedo reticularis [Unknown]
  - Post-traumatic stress disorder [Not Recovered/Not Resolved]
  - Gait disturbance [Unknown]
  - Confusional state [Unknown]
  - Malaise [Unknown]
  - Headache [Not Recovered/Not Resolved]
  - Muscular weakness [Unknown]
  - Dysphagia [Not Recovered/Not Resolved]
  - Facial paralysis [Not Recovered/Not Resolved]
  - Fatigue [Unknown]
  - Erythema [Unknown]
  - Injection site pain [Unknown]
  - Visual impairment [Unknown]
  - Seizure [Not Recovered/Not Resolved]
  - Oral pain [Unknown]
  - Peripheral swelling [Unknown]
  - Facial paresis [Unknown]
  - Muscular weakness [Unknown]

NARRATIVE: CASE EVENT DATE: 2015
